FAERS Safety Report 11810316 (Version 1)
Quarter: 2015Q4

REPORT INFORMATION
  Report Type: Spontaneous
  Country: None (occurrence: None)
  Receive Date: 20151207
  Receipt Date: 20151207
  Transmission Date: 20160305
  Serious: Yes (Disabling)
  Sender: FDA-Public Use
  Company Number: None

PATIENT
  Age: 59 Year
  Sex: Female
  Weight: 69.4 kg

DRUGS (7)
  1. LEVOFLOXACIN 500MG [Suspect]
     Active Substance: LEVOFLOXACIN
     Indication: INFECTION PROPHYLAXIS
     Route: 048
  2. PREDNISONE. [Concomitant]
     Active Substance: PREDNISONE
  3. SPIRIVA [Concomitant]
     Active Substance: TIOTROPIUM BROMIDE MONOHYDRATE
  4. VITAMIN C [Concomitant]
     Active Substance: ASCORBIC ACID
  5. ALBUTEROL SOLUTION [Concomitant]
  6. QVAR INHLER [Concomitant]
  7. VITAMIN B12 [Concomitant]
     Active Substance: CYANOCOBALAMIN

REACTIONS (12)
  - Cognitive disorder [None]
  - Muscle disorder [None]
  - Neuropathy peripheral [None]
  - Fibromyalgia [None]
  - Hallucinations, mixed [None]
  - Muscular weakness [None]
  - Myalgia [None]
  - Paraesthesia [None]
  - Insomnia [None]
  - Tremor [None]
  - Tinnitus [None]
  - Arthralgia [None]

NARRATIVE: CASE EVENT DATE: 20121008
